FAERS Safety Report 22100093 (Version 1)
Quarter: 2023Q1

REPORT INFORMATION
  Report Type: Spontaneous
  Country: US (occurrence: US)
  Receive Date: 20230315
  Receipt Date: 20230315
  Transmission Date: 20230418
  Serious: Yes (Hospitalization, Other)
  Sender: FDA-Public Use
  Company Number: US-BRISTOL-MYERS SQUIBB COMPANY-2023-033795

PATIENT
  Age: 54 Year
  Sex: Female
  Weight: 62 kg

DRUGS (4)
  1. REVLIMID [Suspect]
     Active Substance: LENALIDOMIDE
     Indication: Plasma cell myeloma
     Route: 048
     Dates: start: 20180213
  2. REVLIMID [Suspect]
     Active Substance: LENALIDOMIDE
     Route: 048
     Dates: start: 20180213
  3. EMPLICITI [Concomitant]
     Active Substance: ELOTUZUMAB
     Dosage: 10 MG/KG D1, 8, 15, 22
     Route: 042
     Dates: start: 20180213, end: 202302
  4. DECADRON [Concomitant]
     Active Substance: DEXAMETHASONE
     Dosage: D1, 8, 15, 22
     Route: 048
     Dates: start: 20180213

REACTIONS (1)
  - Pneumonia [Not Recovered/Not Resolved]

NARRATIVE: CASE EVENT DATE: 20220322
